FAERS Safety Report 22078238 (Version 1)
Quarter: 2023Q1

REPORT INFORMATION
  Report Type: Spontaneous
  Country: US (occurrence: US)
  Receive Date: 20230309
  Receipt Date: 20230309
  Transmission Date: 20230417
  Serious: Yes (Hospitalization, Other)
  Sender: FDA-Public Use
  Company Number: PH-HY-2015US146598

PATIENT
  Age: 49 Year
  Sex: Female

DRUGS (36)
  1. JUXTAPID [Interacting]
     Active Substance: LOMITAPIDE MESYLATE
     Indication: Type IIa hyperlipidaemia
     Dosage: 5 MG, QD
     Route: 048
     Dates: start: 200803
  2. JUXTAPID [Interacting]
     Active Substance: LOMITAPIDE MESYLATE
     Dosage: 10 MG, QD
     Route: 048
     Dates: start: 200803
  3. JUXTAPID [Interacting]
     Active Substance: LOMITAPIDE MESYLATE
     Dosage: 20 MG, QD
     Route: 048
     Dates: start: 200803
  4. JUXTAPID [Interacting]
     Active Substance: LOMITAPIDE MESYLATE
     Dosage: 40 MG, QD
     Route: 048
     Dates: start: 200803
  5. JUXTAPID [Interacting]
     Active Substance: LOMITAPIDE MESYLATE
     Dosage: 60 MG, QD
     Route: 048
     Dates: start: 200803
  6. JUXTAPID [Interacting]
     Active Substance: LOMITAPIDE MESYLATE
     Dosage: 40 MG, QD
     Route: 048
     Dates: start: 201307
  7. JUXTAPID [Interacting]
     Active Substance: LOMITAPIDE MESYLATE
     Dosage: 20 MILLIGRAM
  8. JUXTAPID [Interacting]
     Active Substance: LOMITAPIDE MESYLATE
     Dosage: 60 MILLIGRAM
  9. JUXTAPID [Interacting]
     Active Substance: LOMITAPIDE MESYLATE
     Dosage: 40 MILLIGRAM
  10. JUXTAPID [Interacting]
     Active Substance: LOMITAPIDE MESYLATE
     Dosage: 20 MILLIGRAM, QD
  11. JUXTAPID [Interacting]
     Active Substance: LOMITAPIDE MESYLATE
     Dosage: 60 MILLIGRAM, QD
  12. GUAIFENESIN [Suspect]
     Active Substance: GUAIFENESIN
     Indication: Nasopharyngitis
  13. GUAIFENESIN [Suspect]
     Active Substance: GUAIFENESIN
     Indication: Nasopharyngitis
  14. ACETAMINOPHEN\DEXTROMETHORPHAN\DOXYLAMINE SUCCINATE\PSEUDOEPHEDRINE HY [Interacting]
     Active Substance: ACETAMINOPHEN\DEXTROMETHORPHAN\DOXYLAMINE SUCCINATE\PSEUDOEPHEDRINE HYDROCHLORIDE
     Indication: Nasopharyngitis
  15. ACETAMINOPHEN\DEXTROMETHORPHAN\DOXYLAMINE SUCCINATE\PSEUDOEPHEDRINE HY [Interacting]
     Active Substance: ACETAMINOPHEN\DEXTROMETHORPHAN\DOXYLAMINE SUCCINATE\PSEUDOEPHEDRINE HYDROCHLORIDE
     Indication: Nasopharyngitis
  16. ACETAMINOPHEN [Interacting]
     Active Substance: ACETAMINOPHEN
     Indication: Product used for unknown indication
     Dosage: 0.03 MG/KG, QD
  17. ACETAMINOPHEN [Interacting]
     Active Substance: ACETAMINOPHEN
     Dosage: UNK, BID
  18. DEXTROMETHORPHAN HYDROBROMIDE\GUAIFENESIN\PSEUDOEPHEDRINE HYDROCHLORID [Interacting]
     Active Substance: DEXTROMETHORPHAN HYDROBROMIDE\GUAIFENESIN\PSEUDOEPHEDRINE HYDROCHLORIDE
     Indication: Nasopharyngitis
  19. ROBITUSSIN COUGH AND COLD D [Interacting]
     Active Substance: DEXTROMETHORPHAN HYDROBROMIDE\GUAIFENESIN\PSEUDOEPHEDRINE HYDROCHLORIDE
     Indication: Nasopharyngitis
  20. WARFARIN SODIUM [Interacting]
     Active Substance: WARFARIN SODIUM
     Indication: Anticoagulant therapy
     Dosage: 4 MG, QD, ADJUSTED TO MAINTAIN AN INR OF 2.5-3.5
  21. WARFARIN SODIUM [Interacting]
     Active Substance: WARFARIN SODIUM
     Dosage: 2.5 MG, UNK
  22. WARFARIN SODIUM [Interacting]
     Active Substance: WARFARIN SODIUM
     Dosage: 3.5 MG, UNK
  23. WARFARIN SODIUM [Interacting]
     Active Substance: WARFARIN SODIUM
     Dosage: 0.03 MG/KG, QD
  24. WARFARIN SODIUM [Interacting]
     Active Substance: WARFARIN SODIUM
     Dosage: 1 MG/KG, QD
  25. ASPIRIN [Concomitant]
     Active Substance: ASPIRIN
     Indication: Product used for unknown indication
     Dosage: 81 MG, QD
  26. COLESEVELAM [Concomitant]
     Active Substance: COLESEVELAM
     Indication: Type IIa hyperlipidaemia
     Dosage: 3750 MG, QD
  27. EZETIMIBE [Concomitant]
     Active Substance: EZETIMIBE
     Indication: Type IIa hyperlipidaemia
     Dosage: 10 MG, QD
  28. EZETIMIBE [Concomitant]
     Active Substance: EZETIMIBE
     Indication: Lipids increased
  29. FERROUS SULFATE [Concomitant]
     Active Substance: FERROUS SULFATE
     Indication: Product used for unknown indication
     Dosage: 325 MG, QD
  30. IBUPROFEN [Concomitant]
     Active Substance: IBUPROFEN
     Indication: Nasopharyngitis
  31. IBUPROFEN [Concomitant]
     Active Substance: IBUPROFEN
     Indication: Nasopharyngitis
  32. METOPROLOL TARTRATE [Concomitant]
     Active Substance: METOPROLOL TARTRATE
     Indication: Product used for unknown indication
     Dosage: 100 MG, QD
  33. ROSUVASTATIN [Concomitant]
     Active Substance: ROSUVASTATIN
     Indication: Type IIa hyperlipidaemia
     Dosage: 40 MG, QD
  34. ROSUVASTATIN [Concomitant]
     Active Substance: ROSUVASTATIN
     Indication: Lipids increased
  35. ONDANSETRON [Concomitant]
     Active Substance: ONDANSETRON
     Indication: Nausea
  36. PROGESTERONE [Concomitant]
     Active Substance: PROGESTERONE
     Indication: Heavy menstrual bleeding
     Dosage: UNK

REACTIONS (24)
  - Subdural haematoma [Recovered/Resolved]
  - Haemorrhagic stroke [Unknown]
  - Cerebrovascular accident [Unknown]
  - Cerebral microhaemorrhage [Unknown]
  - Drug interaction [Unknown]
  - Cerebral haemorrhage [Recovered/Resolved]
  - Hypovolaemic shock [Unknown]
  - Myocardial infarction [Unknown]
  - Cardiac failure congestive [Unknown]
  - Neurological symptom [Recovered/Resolved]
  - International normalised ratio increased [Recovered/Resolved]
  - Toxicity to various agents [Unknown]
  - Anaemia [Unknown]
  - Heavy menstrual bleeding [Unknown]
  - Viral infection [Unknown]
  - Alanine aminotransferase increased [Unknown]
  - Aspartate aminotransferase increased [Unknown]
  - Nausea [Unknown]
  - Weight decreased [Unknown]
  - Liver function test increased [Recovered/Resolved]
  - Hepatic enzyme increased [Unknown]
  - Hepatotoxicity [Unknown]
  - Product dose omission issue [Unknown]
  - Self-medication [Unknown]
